FAERS Safety Report 6474297-0 (Version None)
Quarter: 2009Q4

REPORT INFORMATION
  Report Type: 
  Country: None (occurrence: None)
  Receive Date: 20091204
  Receipt Date: 20091202
  Transmission Date: 20100525
  Serious: Yes (Life-Threatening, Disabling, Other)
  Sender: FDA-Public Use
  Company Number: PHEH2009US16688

PATIENT
  Sex: Male
  Weight: 76.19 kg

DRUGS (1)
  1. EXJADE [Suspect]
     Indication: HAEMOLYTIC ANAEMIA
     Dosage: 500 MG DAILY
     Route: 048
     Dates: start: 20080509, end: 20090930

REACTIONS (14)
  - ACUTE MYELOID LEUKAEMIA [None]
  - ANAEMIA [None]
  - CHILLS [None]
  - CONCOMITANT DISEASE PROGRESSION [None]
  - CONJUNCTIVAL HAEMORRHAGE [None]
  - COUGH [None]
  - DYSPNOEA [None]
  - ECCHYMOSIS [None]
  - FATIGUE [None]
  - PAIN [None]
  - PYREXIA [None]
  - TERMINAL STATE [None]
  - THROMBOCYTOPENIA [None]
  - WHITE BLOOD CELL COUNT INCREASED [None]
